FAERS Safety Report 5397700-6 (Version None)
Quarter: 2007Q3

REPORT INFORMATION
  Report Type: 
  Country: None (occurrence: None)
  Receive Date: 20070726
  Receipt Date: 20070720
  Transmission Date: 20080115
  Serious: Yes (Death)
  Sender: FDA-Public Use
  Company Number: AU-AVENTIS-200713489EU

PATIENT
  Age: 64 Year
  Sex: Female

DRUGS (2)
  1. RILUTEK [Suspect]
     Indication: MOTOR NEURONE DISEASE
     Route: 048
     Dates: start: 20061006
  2. IMIPRAMINE [Concomitant]
     Indication: DEPRESSION
     Route: 048

REACTIONS (1)
  - MOTOR NEURONE DISEASE [None]
